FAERS Safety Report 10710440 (Version 1)
Quarter: 2015Q1

REPORT INFORMATION
  Report Type: Report from Study
  Country: US (occurrence: US)
  Receive Date: 20150114
  Receipt Date: 20150114
  Transmission Date: 20150721
  Serious: Yes (Hospitalization)
  Sender: FDA-Public Use
  Company Number: US-GLAXOSMITHKLINE-A1039391A

PATIENT
  Sex: Female

DRUGS (2)
  1. FLUTICASONE PROPIONATE+SALMETEROL XINAFOATE [Suspect]
     Active Substance: FLUTICASONE PROPIONATE\SALMETEROL XINAFOATE
     Indication: PANIC ATTACK
  2. FLUTICASONE PROPIONATE+SALMETEROL XINAFOATE [Suspect]
     Active Substance: FLUTICASONE PROPIONATE\SALMETEROL XINAFOATE
     Indication: CHRONIC OBSTRUCTIVE PULMONARY DISEASE
     Route: 055

REACTIONS (11)
  - Ill-defined disorder [Unknown]
  - Dyspnoea [Unknown]
  - Back pain [Unknown]
  - Candida infection [Unknown]
  - Fear [Unknown]
  - Dyspepsia [Unknown]
  - Herpes zoster [Unknown]
  - Panic attack [Unknown]
  - Laceration [Not Recovered/Not Resolved]
  - Drug ineffective for unapproved indication [Unknown]
  - Contusion [Unknown]
